FAERS Safety Report 14757187 (Version 1)
Quarter: 2018Q2

REPORT INFORMATION
  Report Type: Spontaneous
  Country: US (occurrence: US)
  Receive Date: 20180413
  Receipt Date: 20180413
  Transmission Date: 20180711
  Serious: No
  Sender: FDA-Public Use
  Company Number: PHEH2018US013834

PATIENT
  Sex: Female

DRUGS (1)
  1. AMANTADINE. [Suspect]
     Active Substance: AMANTADINE HYDROCHLORIDE
     Indication: PRODUCT USED FOR UNKNOWN INDICATION
     Route: 065

REACTIONS (8)
  - Abdominal pain upper [Unknown]
  - Dyskinesia [Unknown]
  - Memory impairment [Unknown]
  - Dry mouth [Unknown]
  - Feeling abnormal [Unknown]
  - Depression [Unknown]
  - Malaise [Unknown]
  - Sleep talking [Unknown]
